FAERS Safety Report 15493531 (Version 1)
Quarter: 2018Q4

REPORT INFORMATION
  Report Type: Spontaneous
  Country: US (occurrence: US)
  Receive Date: 20181004
  Receipt Date: 20181004
  Transmission Date: 20190205
  Serious: Yes (Other)
  Sender: FDA-Public Use
  Company Number: None

PATIENT
  Age: 70 Year
  Sex: Female
  Weight: 74.7 kg

DRUGS (9)
  1. IBRANCE [Suspect]
     Active Substance: PALBOCICLIB
     Indication: NEOPLASM MALIGNANT
     Route: 048
     Dates: start: 20170512, end: 20181003
  2. SPIRIVA [Concomitant]
     Active Substance: TIOTROPIUM BROMIDE MONOHYDRATE
  3. ATENOLOL. [Concomitant]
     Active Substance: ATENOLOL
  4. EXEMESTANE. [Concomitant]
     Active Substance: EXEMESTANE
  5. XARELTO [Concomitant]
     Active Substance: RIVAROXABAN
  6. VITAMIN B12 [Concomitant]
     Active Substance: CYANOCOBALAMIN
  7. HYDROCODONE-ACETAMINOPHEN [Concomitant]
     Active Substance: ACETAMINOPHEN\HYDROCODONE
  8. ZYRTEC [Concomitant]
     Active Substance: CETIRIZINE HYDROCHLORIDE
  9. CARDIZEM LA [Concomitant]
     Active Substance: DILTIAZEM HYDROCHLORIDE

REACTIONS (1)
  - Full blood count decreased [None]
